FAERS Safety Report 4663969-6 (Version None)
Quarter: 2005Q2

REPORT INFORMATION
  Report Type: 
  Country: None (occurrence: None)
  Receive Date: 20050418
  Receipt Date: 20050112
  Transmission Date: 20051028
  Serious: Yes (Other)
  Sender: FDA-Public Use
  Company Number: HQWYE641014JAN05

PATIENT
  Sex: Male

DRUGS (4)
  1. ALAVERT [Suspect]
     Indication: NASAL DISCOMFORT
     Dosage: 1 TAB DAILY, ORAL
     Route: 048
     Dates: start: 20041231, end: 20050104
  2. ALAVERT [Suspect]
     Indication: RHINORRHOEA
     Dosage: 1 TAB DAILY, ORAL
     Route: 048
     Dates: start: 20041231, end: 20050104
  3. ALAVERT [Suspect]
     Indication: SNEEZING
     Dosage: 1 TAB DAILY, ORAL
     Route: 048
     Dates: start: 20041231, end: 20050104
  4. ALAVERT [Suspect]
     Indication: THROAT IRRITATION
     Dosage: 1 TAB DAILY, ORAL
     Route: 048
     Dates: start: 20041231, end: 20050104

REACTIONS (1)
  - CONVULSION [None]
